FAERS Safety Report 10149868 (Version 1)
Quarter: 2014Q2

REPORT INFORMATION
  Report Type: Spontaneous
  Country: US (occurrence: None)
  Receive Date: 20140501
  Receipt Date: 20140501
  Transmission Date: 20141212
  Serious: No
  Sender: FDA-Public Use
  Company Number: None

PATIENT
  Age: 31 Year
  Sex: Female

DRUGS (2)
  1. CLONAZEPAM 1MG [Suspect]
     Route: 048
     Dates: start: 2012
  2. ALPAZOLAM [Suspect]
     Route: 048
     Dates: start: 2010

REACTIONS (2)
  - Panic attack [None]
  - Condition aggravated [None]
